FAERS Safety Report 4590364-0 (Version None)
Quarter: 2005Q1

REPORT INFORMATION
  Report Type: 
  Country: None (occurrence: None)
  Receive Date: 20050217
  Receipt Date: 20050203
  Transmission Date: 20050727
  Serious: Yes (Life-Threatening)
  Sender: FDA-Public Use
  Company Number: 05H-163-0289890-00

PATIENT
  Age: 63 Year
  Sex: Female
  Weight: 50 kg

DRUGS (10)
  1. INTROPRESS INJECTION (SODIUM NITROPRUSSIDE INJECTION) (SODIUM NITROPRU [Suspect]
     Indication: HYPERTENSION
     Dosage: 15 ML/HR, INTRAVENOUS
     Route: 042
     Dates: start: 20050110
  2. HEPARIN [Concomitant]
  3. METFORMIN HCL [Concomitant]
  4. DIGOXIN [Concomitant]
  5. METOPROLOL TARTRATE [Concomitant]
  6. FUROSEMIDE [Concomitant]
  7. PHARMACOR [Concomitant]
  8. KETOROLAC TROMETHAMINE [Concomitant]
  9. VANCOMYCIN [Concomitant]
  10. BLOOD TRANSFUSION [Concomitant]

REACTIONS (3)
  - CARDIAC TAMPONADE [None]
  - HYPOTENSION [None]
  - HYPOXIA [None]
